FAERS Safety Report 18741285 (Version 1)
Quarter: 2021Q1

REPORT INFORMATION
  Report Type: Spontaneous
  Country: US (occurrence: US)
  Receive Date: 20210114
  Receipt Date: 20210114
  Transmission Date: 20210419
  Serious: No
  Sender: FDA-Public Use
  Company Number: US-PFIZER INC-2020061396

PATIENT
  Age: 43 Year
  Sex: Male
  Weight: 138.3 kg

DRUGS (1)
  1. LYRICA [Suspect]
     Active Substance: PREGABALIN
     Indication: NERVOUS SYSTEM DISORDER
     Dosage: 225 MG, 2X/DAY

REACTIONS (2)
  - Frustration tolerance decreased [Unknown]
  - Off label use [Unknown]
